FAERS Safety Report 16429564 (Version 1)
Quarter: 2019Q2

REPORT INFORMATION
  Report Type: Spontaneous
  Country: GB (occurrence: GB)
  Receive Date: 20190614
  Receipt Date: 20190614
  Transmission Date: 20190711
  Serious: Yes (Hospitalization)
  Sender: FDA-Public Use
  Company Number: GB-TEVA-2019-GB-1064138

PATIENT
  Age: 78 Year
  Sex: Male

DRUGS (6)
  1. TINZAPARIN [Suspect]
     Active Substance: TINZAPARIN
     Indication: ANTICOAGULANT THERAPY
     Dosage: 4500 UNITS
     Route: 065
  2. LATANOPROST. [Concomitant]
     Active Substance: LATANOPROST
     Indication: ANGLE CLOSURE GLAUCOMA
     Route: 065
  3. DORZOLAMIDE [Concomitant]
     Active Substance: DORZOLAMIDE
     Indication: ANGLE CLOSURE GLAUCOMA
     Route: 065
  4. WARFARIN [Suspect]
     Active Substance: WARFARIN
     Indication: ANTICOAGULANT THERAPY
     Route: 048
  5. BRIMONIDINE [Concomitant]
     Active Substance: BRIMONIDINE TARTRATE
     Indication: ANGLE CLOSURE GLAUCOMA
     Route: 065
  6. MITOMYCIN C [Suspect]
     Active Substance: MITOMYCIN
     Indication: DRUG THERAPY
     Route: 057

REACTIONS (3)
  - Intraocular pressure increased [Recovering/Resolving]
  - Visual acuity reduced [Recovering/Resolving]
  - Choroidal haemorrhage [Recovered/Resolved]
